FAERS Safety Report 22236539 (Version 1)
Quarter: 2023Q2

REPORT INFORMATION
  Report Type: Other
  Country: US (occurrence: None)
  Receive Date: 20230420
  Receipt Date: 20230420
  Transmission Date: 20230722
  Serious: No
  Sender: FDA-Public Use
  Company Number: US-ROCHE-3251641

PATIENT
  Age: 7 Year
  Sex: Female

DRUGS (3)
  1. BEVACIZUMAB [Suspect]
     Active Substance: BEVACIZUMAB
     Indication: Respiratory papilloma
     Dosage: 4 INJECTIONS
     Route: 026
  2. HUMAN PAPILLOMAVIRUS QUADRIVALENT (TYPES 6, 11, 16, AND 18) VACCINE, R [Concomitant]
     Active Substance: HUMAN PAPILLOMAVIRUS QUADRIVALENT (TYPES 6, 11, 16, AND 18) VACCINE, RECOMBINANT
     Indication: Respiratory papilloma
     Dosage: TYPES 6, 11, 16, AND 18
  3. BEVACIZUMAB-AWWB [Concomitant]
     Active Substance: BEVACIZUMAB-AWWB
     Indication: Respiratory papilloma
     Dosage: FOUR TREATMENTS AT THREE-WEEK INTERVALS
     Route: 042
     Dates: start: 202102, end: 202206

REACTIONS (2)
  - Treatment failure [Unknown]
  - No adverse event [Unknown]
